FAERS Safety Report 10004804 (Version 3)
Quarter: 2014Q2

REPORT INFORMATION
  Report Type: Report from Study
  Country: IE (occurrence: IE)
  Receive Date: 20140312
  Receipt Date: 20140516
  Transmission Date: 20141212
  Serious: Yes (Hospitalization)
  Sender: FDA-Public Use
  Company Number: IE-GLAXOSMITHKLINE-B0975746A

PATIENT
  Age: 75 Year
  Sex: Female

DRUGS (4)
  1. VOTRIENT [Suspect]
     Indication: LEIOMYOSARCOMA METASTATIC
     Dosage: 800MG PER DAY
     Route: 048
     Dates: start: 20131121
  2. NATRILIX [Concomitant]
  3. LIPANTIL [Concomitant]
  4. ISTIN [Concomitant]

REACTIONS (1)
  - Intestinal operation [Recovered/Resolved]
